FAERS Safety Report 18918812 (Version 3)
Quarter: 2021Q4

REPORT INFORMATION
  Report Type: Report from Study
  Country: US (occurrence: US)
  Receive Date: 20210220
  Receipt Date: 20211222
  Transmission Date: 20220303
  Serious: Yes (Hospitalization, Other)
  Sender: FDA-Public Use
  Company Number: US-TAKEDA-2021TUS008628

PATIENT
  Sex: Male
  Weight: 72 kg

DRUGS (13)
  1. GAMMAGARD LIQUID [Suspect]
     Active Substance: HUMAN IMMUNOGLOBULIN G
     Indication: Chronic inflammatory demyelinating polyradiculoneuropathy
     Dosage: 200 MILLIGRAM/KILOGRAM,DIVIDE 3D EVERY 4 WEEKS
     Route: 042
     Dates: start: 20180530
  2. HUMAN IMMUNOGLOBULIN G [Suspect]
     Active Substance: HUMAN IMMUNOGLOBULIN G
     Indication: Chronic inflammatory demyelinating polyradiculoneuropathy
     Dosage: 200 MILLIGRAM/KILOGRAM
     Route: 042
     Dates: start: 20180530
  3. ACETAMINOPHEN [Concomitant]
     Active Substance: ACETAMINOPHEN
  4. HEPARIN [Concomitant]
     Active Substance: HEPARIN SODIUM
  5. IBUPROFEN [Concomitant]
     Active Substance: IBUPROFEN
  6. SODIUM CHLORIDE [Concomitant]
     Active Substance: SODIUM CHLORIDE
  7. EPINEPHRINE [Concomitant]
     Active Substance: EPINEPHRINE
  8. OXYGEN [Concomitant]
     Active Substance: OXYGEN
  9. SINGULAIR [Concomitant]
     Active Substance: MONTELUKAST SODIUM
  10. DRISDOL [Concomitant]
     Active Substance: ERGOCALCIFEROL
  11. VIMPAT [Concomitant]
     Active Substance: LACOSAMIDE
  12. KEPPRA [Concomitant]
     Active Substance: LEVETIRACETAM
  13. FURADANTIN [Concomitant]
     Active Substance: NITROFURANTOIN

REACTIONS (6)
  - Aspiration [Unknown]
  - Pneumonia aspiration [Unknown]
  - Vomiting [Unknown]
  - Seizure [Unknown]
  - Product use in unapproved indication [Unknown]
  - Infusion related reaction [Unknown]
